FAERS Safety Report 4541760-9 (Version None)
Quarter: 2004Q4

REPORT INFORMATION
  Report Type: 
  Country: None (occurrence: None)
  Receive Date: 20041230
  Receipt Date: 20040716
  Transmission Date: 20050328
  Serious: Yes (Other)
  Sender: FDA-Public Use
  Company Number: 200417115US

PATIENT
  Sex: Female

DRUGS (44)
  1. ARAVA [Suspect]
     Indication: RHEUMATOID ARTHRITIS
     Dosage: DOSE: NOT PROVIDED
     Dates: start: 19990909, end: 20040401
  2. FOSAMAX [Concomitant]
     Indication: OSTEOPENIA
     Dates: start: 19990510
  3. LABETALOL [Concomitant]
     Indication: HYPERTENSION
     Dates: start: 20000517
  4. PRILOSEC [Concomitant]
     Indication: GASTRITIS
  5. CELEBREX [Concomitant]
     Indication: RHEUMATOID ARTHRITIS
     Dates: start: 19990909
  6. METHOTREXATE [Concomitant]
     Indication: RHEUMATOID ARTHRITIS
     Dates: start: 19990322
  7. PREDNISONE [Concomitant]
     Indication: RHEUMATOID ARTHRITIS
     Dosage: DOSE: 1-10
     Dates: start: 19990310
  8. GOLD [Concomitant]
     Indication: RHEUMATOID ARTHRITIS
     Dosage: DOSE: NOT PROVIDED
     Route: 048
  9. MULTIVITAMINS, PLAIN [Concomitant]
     Dosage: DOSE: NOT PROVIDED
  10. VITAMIN A [Concomitant]
     Dosage: DOSE: NOT PROVIDED
  11. ACCUPRIL [Concomitant]
     Indication: HYPERTENSION
  12. CENESTIN [Concomitant]
     Indication: HORMONE REPLACEMENT THERAPY
     Dates: start: 19860101, end: 20040201
  13. NEXIUM [Concomitant]
     Indication: GASTRITIS
  14. PROVERA [Concomitant]
     Indication: HORMONE REPLACEMENT THERAPY
     Dates: start: 19860101, end: 20040201
  15. OS-CAL [Concomitant]
  16. MOBIC [Concomitant]
     Indication: RHEUMATOID ARTHRITIS
     Dosage: DOSE: NOT PROVIDED
  17. HYDROCHLOROTHIAZIDE [Concomitant]
     Indication: HYPERTENSION
     Dosage: DOSE: NOT PROVIDED
  18. VITAMIN C [Concomitant]
     Dosage: DOSE: NOT PROVIDED
  19. VITAMIN E [Concomitant]
     Dosage: DOSE: NOT PROVIDED
  20. ZANTAC [Concomitant]
     Indication: GASTRITIS
     Dates: start: 19990809
  21. B12 [Concomitant]
     Indication: VITAMIN B12 DEFICIENCY
     Dosage: DOSE: NOT PROVIDED
  22. BEXTRA [Concomitant]
     Indication: RHEUMATOID ARTHRITIS
  23. HUMIBID [Concomitant]
     Indication: SINUS CONGESTION
     Dosage: DOSE: NOT PROVIDED
  24. ALLEGRA [Concomitant]
     Indication: CHRONIC SINUSITIS
     Dates: start: 20010406
  25. FLONASE [Concomitant]
     Indication: CHRONIC SINUSITIS
     Dosage: DOSE: NOT PROVIDED
  26. OMNICEF [Concomitant]
     Indication: CHRONIC SINUSITIS
     Dosage: DOSE: NOT PROVIDED
  27. AMOXICILLIN [Concomitant]
     Indication: SINUS CONGESTION
     Dosage: DOSE: NOT PROVIDED
  28. ASTELIN [Concomitant]
     Indication: NASAL CONGESTION
     Dosage: DOSE: NOT PROVIDED
  29. AVELOX [Concomitant]
     Indication: NASAL CONGESTION
     Dosage: DOSE: NOT PROVIDED
  30. ZITHROMAX [Concomitant]
     Dates: start: 19990118
  31. AZULFIDINE [Concomitant]
     Dosage: DOSE: NOT PROVIDED
     Dates: start: 19990406
  32. HYDROXYCHLOROQUINE [Concomitant]
     Indication: RHEUMATOID ARTHRITIS
     Dosage: DOSE: NOT PROVIDED
     Dates: start: 19990406
  33. ESTRADIOL [Concomitant]
     Dates: start: 19990406
  34. FOLIC ACID [Concomitant]
     Dates: start: 19990510
  35. PROPOXYPHENE NAPSYLATE W/ ACETAMINOPHEN [Concomitant]
     Dosage: DOSE: NOT PROVIDED
     Dates: start: 19990714
  36. GUAIFENESIN W/DEXTROMETHORPHAN [Concomitant]
     Dosage: DOSE: NOT PROVIDED
     Dates: start: 19990517
  37. ACETAMINOPHEN AND HYDROCODONE BITARTRATE [Concomitant]
     Dosage: DOSE: NOT PROVIDED
     Dates: start: 20000517
  38. CEPHALEXIN [Concomitant]
     Dates: start: 20000517
  39. DIPROSONE [Concomitant]
     Dosage: DOSE: NOT PROVIDED
     Route: 061
     Dates: start: 20001013
  40. LAC-HYDRIN [Concomitant]
     Dosage: DOSE: 12%
     Route: 061
     Dates: start: 20001013
  41. ATROVENT [Concomitant]
     Dosage: DOSE: NOT PROVIDED
     Route: 045
     Dates: start: 20001121
  42. GUAIFENESIN W/DEXTROMETHORPHAN [Concomitant]
     Dosage: DOSE: NOT PROVIDED
     Route: 048
     Dates: start: 20001121
  43. NASONEX [Concomitant]
     Dates: start: 20010406
  44. LOPROX [Concomitant]
     Dosage: DOSE: 0.77%
     Route: 061
     Dates: start: 20010523

REACTIONS (30)
  - ABDOMINAL DISTENSION [None]
  - ABDOMINAL PAIN [None]
  - ACTINIC KERATOSIS [None]
  - ANAEMIA [None]
  - BLOOD ALKALINE PHOSPHATASE INCREASED [None]
  - BLOOD PRESSURE INCREASED [None]
  - BREAST CANCER [None]
  - CHEST PAIN [None]
  - DIARRHOEA [None]
  - DIZZINESS [None]
  - DRY MOUTH [None]
  - EYELID CYST [None]
  - HAEMATOCRIT DECREASED [None]
  - HAEMOGLOBIN DECREASED [None]
  - HAIR DISORDER [None]
  - HEADACHE [None]
  - HYPERKERATOSIS [None]
  - HYPERTENSION [None]
  - IMPAIRED HEALING [None]
  - INTERSTITIAL LUNG DISEASE [None]
  - LOOSE STOOLS [None]
  - NAIL DISORDER [None]
  - NEUROPATHY PERIPHERAL [None]
  - PARAESTHESIA [None]
  - SEBORRHOEIC KERATOSIS [None]
  - SEROMA [None]
  - SKIN LESION [None]
  - SQUAMOUS CELL CARCINOMA [None]
  - VERTIGO [None]
  - WEIGHT DECREASED [None]
